FAERS Safety Report 14844660 (Version 2)
Quarter: 2018Q4

REPORT INFORMATION
  Report Type: Spontaneous
  Country: FR (occurrence: FR)
  Receive Date: 20180504
  Receipt Date: 20181024
  Transmission Date: 20190204
  Serious: Yes (Other)
  Sender: FDA-Public Use
  Company Number: FR-MERCK KGAA-2047146

PATIENT
  Age: 74 Year
  Sex: Male

DRUGS (1)
  1. EUTHYROX [Suspect]
     Active Substance: LEVOTHYROXINE SODIUM
     Indication: HYPOTHYROIDISM

REACTIONS (13)
  - Irritability [None]
  - Personal relationship issue [None]
  - Social avoidant behaviour [None]
  - Lateral medullary syndrome [None]
  - Cerebrovascular accident [None]
  - Fatigue [Recovered/Resolved]
  - Somnolence [None]
  - Psychiatric symptom [None]
  - Gait disturbance [None]
  - Muscle spasms [Recovered/Resolved]
  - Anxiety [None]
  - Nervousness [None]
  - Feeling abnormal [None]

NARRATIVE: CASE EVENT DATE: 2017
